FAERS Safety Report 14257248 (Version 2)
Quarter: 2018Q1

REPORT INFORMATION
  Report Type: Report from Study
  Country: FR (occurrence: FR)
  Receive Date: 20171206
  Receipt Date: 20180105
  Transmission Date: 20180508
  Serious: Yes (Other)
  Sender: FDA-Public Use
  Company Number: PHHO2017FR016463

PATIENT
  Age: 36 Year
  Sex: Male
  Weight: 60 kg

DRUGS (23)
  1. AMN107 [Suspect]
     Active Substance: NILOTINIB
     Indication: ACUTE LYMPHOCYTIC LEUKAEMIA
     Dosage: 800 MG, QD (DAY 1 TO DAY 10)
     Route: 048
     Dates: start: 20171110, end: 20171114
  2. METHOTREXATE. [Suspect]
     Active Substance: METHOTREXATE
     Dosage: 15 MG, DAY 15
     Route: 065
     Dates: start: 20171124, end: 20171124
  3. DEXAMETHASONE. [Concomitant]
     Active Substance: DEXAMETHASONE
     Dosage: 40 MG, DAY 16
     Route: 048
     Dates: start: 20171125, end: 20171125
  4. CYTARABINE. [Concomitant]
     Active Substance: CYTARABINE
     Dosage: 40 MG, UNK
     Route: 065
     Dates: start: 20171117, end: 20171117
  5. METHYLPREDNISOLONE. [Concomitant]
     Active Substance: METHYLPREDNISOLONE
     Dosage: 40 MG, UNK
     Route: 065
     Dates: start: 20171117, end: 20171117
  6. CYTARABINE. [Concomitant]
     Active Substance: CYTARABINE
     Dosage: 40 MG, UNK
     Route: 065
     Dates: start: 20171124, end: 20171124
  7. DEXAMETHASONE. [Concomitant]
     Active Substance: DEXAMETHASONE
     Dosage: 40 MG, DAY 8
     Route: 048
     Dates: start: 20171117, end: 20171117
  8. DEXAMETHASONE. [Concomitant]
     Active Substance: DEXAMETHASONE
     Dosage: 40 MG, DAY 15
     Route: 048
     Dates: start: 20171124, end: 20171124
  9. METHOTREXATE. [Suspect]
     Active Substance: METHOTREXATE
     Dosage: 15 MG, DAY 8
     Route: 065
     Dates: start: 20171117, end: 20171117
  10. DEXAMETHASONE. [Concomitant]
     Active Substance: DEXAMETHASONE
     Dosage: 40 MG, DAY 23
     Route: 048
     Dates: start: 20171202, end: 20171202
  11. VINCRISTINE [Concomitant]
     Active Substance: VINCRISTINE
     Indication: PRODUCT USED FOR UNKNOWN INDICATION
     Dosage: UNK
     Route: 042
     Dates: start: 20171110, end: 20171110
  12. AMN107 [Suspect]
     Active Substance: NILOTINIB
     Dosage: 600 MG, QD (DAY 1 TO DAY 10)
     Route: 048
     Dates: start: 20171115, end: 20171119
  13. DEXAMETHASONE. [Concomitant]
     Active Substance: DEXAMETHASONE
     Dosage: 40 MG, DAY 9
     Route: 048
     Dates: start: 20171118, end: 20171118
  14. METHOTREXATE. [Suspect]
     Active Substance: METHOTREXATE
     Indication: PRODUCT USED FOR UNKNOWN INDICATION
     Dosage: 15 MG, DAY 1
     Route: 065
     Dates: start: 20171110, end: 20171110
  15. DEXAMETHASONE. [Concomitant]
     Active Substance: DEXAMETHASONE
     Dosage: 40 MG, DAY 2
     Route: 048
     Dates: start: 20171111, end: 20171111
  16. METHYLPREDNISOLONE. [Concomitant]
     Active Substance: METHYLPREDNISOLONE
     Indication: PRODUCT USED FOR UNKNOWN INDICATION
     Dosage: 40 MG, UNK
     Route: 065
     Dates: start: 20171110, end: 20171110
  17. VINCRISTINE [Concomitant]
     Active Substance: VINCRISTINE
     Dosage: UNK
     Route: 042
     Dates: start: 20171124, end: 20171124
  18. AMN107 [Suspect]
     Active Substance: NILOTINIB
     Dosage: 600 MG, QD (DAY 19 TO DAY 28)
     Route: 048
     Dates: start: 20171128, end: 20171207
  19. DEXAMETHASONE. [Concomitant]
     Active Substance: DEXAMETHASONE
     Indication: PRODUCT USED FOR UNKNOWN INDICATION
     Dosage: 40 MG, DAY1
     Route: 048
     Dates: start: 20171110, end: 20171110
  20. DEXAMETHASONE. [Concomitant]
     Active Substance: DEXAMETHASONE
     Dosage: 40 MG, DAY 22
     Route: 048
     Dates: start: 20171201, end: 20171201
  21. METHYLPREDNISOLONE. [Concomitant]
     Active Substance: METHYLPREDNISOLONE
     Dosage: 40 MG, UNK
     Route: 065
     Dates: start: 20171124, end: 20171124
  22. CYTARABINE. [Concomitant]
     Active Substance: CYTARABINE
     Indication: PRODUCT USED FOR UNKNOWN INDICATION
     Dosage: 40 MG, UNK
     Route: 065
     Dates: start: 20171110, end: 20171110
  23. VINDESINE [Concomitant]
     Active Substance: VINDESINE
     Indication: PRODUCT USED FOR UNKNOWN INDICATION
     Dosage: DAY 15, DAY 22
     Route: 042

REACTIONS (1)
  - Hepatocellular injury [Recovered/Resolved]

NARRATIVE: CASE EVENT DATE: 20171113
